FAERS Safety Report 18234744 (Version 1)
Quarter: 2020Q3

REPORT INFORMATION
  Report Type: Spontaneous
  Country: IT (occurrence: IT)
  Receive Date: 20200904
  Receipt Date: 20200904
  Transmission Date: 20201103
  Serious: Yes (Other)
  Sender: FDA-Public Use
  Company Number: NVSC2020IT240762

PATIENT
  Age: 21 Year
  Sex: Male

DRUGS (2)
  1. MOXIFLOXACIN. [Suspect]
     Active Substance: MOXIFLOXACIN
     Indication: EAR PAIN
     Dosage: 1 DF, TOTAL
     Route: 048
     Dates: start: 20200820, end: 20200820
  2. KETODOL [Concomitant]
     Indication: EAR PAIN
     Dosage: 1 DF (COMPRESS)
     Route: 048
     Dates: start: 20200820, end: 20200820

REACTIONS (3)
  - Dyspnoea [Recovering/Resolving]
  - Eyelid oedema [Recovering/Resolving]
  - Sensation of foreign body [Recovering/Resolving]

NARRATIVE: CASE EVENT DATE: 20200820
